FAERS Safety Report 4961894-4 (Version None)
Quarter: 2006Q2

REPORT INFORMATION
  Report Type: 
  Country: None (occurrence: None)
  Receive Date: 20060404
  Receipt Date: 20050504
  Transmission Date: 20061013
  Serious: Yes (Other)
  Sender: FDA-Public Use
  Company Number: 2005UW06918

PATIENT
  Age: 54 Year
  Sex: Female
  Weight: 90.7 kg

DRUGS (7)
  1. SEROQUEL [Suspect]
     Indication: PANIC DISORDER
     Dosage: 100 MG-1000 MG/ DAY FOR 5-6 YEARS
     Route: 048
     Dates: end: 20060301
  2. SEROQUEL [Suspect]
     Indication: SCHIZOPHRENIA
     Dosage: 100 MG-1000 MG/ DAY FOR 5-6 YEARS
     Route: 048
     Dates: end: 20060301
  3. SEROQUEL [Suspect]
     Indication: SCHIZOAFFECTIVE DISORDER
     Dosage: 100 MG-1000 MG/ DAY FOR 5-6 YEARS
     Route: 048
     Dates: end: 20060301
  4. GLUCOPHAGE [Suspect]
     Indication: DIABETES MELLITUS
  5. SERAX [Concomitant]
     Route: 048
  6. PRILOSEC [Concomitant]
     Route: 048
  7. PAXIL [Concomitant]
     Route: 048

REACTIONS (7)
  - CARDIAC DISORDER [None]
  - DIABETES MELLITUS [None]
  - DRUG INEFFECTIVE [None]
  - INCREASED APPETITE [None]
  - MUSCULOSKELETAL DISORDER [None]
  - PANCREATITIS [None]
  - WEIGHT INCREASED [None]
